FAERS Safety Report 13466311 (Version 1)
Quarter: 2017Q2

REPORT INFORMATION
  Report Type: Spontaneous
  Country: US (occurrence: US)
  Receive Date: 20170420
  Receipt Date: 20170420
  Transmission Date: 20170830
  Serious: No
  Sender: FDA-Public Use
  Company Number: None

PATIENT
  Sex: Female

DRUGS (1)
  1. COSENTYX [Suspect]
     Active Substance: SECUKINUMAB
     Indication: RHEUMATOID ARTHRITIS
     Dosage: 150MG/ML EVERY 4 WEEKS SUBCUTANEOUSLY
     Route: 058
     Dates: start: 20160729, end: 20170311

REACTIONS (3)
  - Arthritis [None]
  - Arthralgia [None]
  - Therapy cessation [None]
